FAERS Safety Report 17261311 (Version 1)
Quarter: 2020Q1

REPORT INFORMATION
  Report Type: Spontaneous
  Country: IT (occurrence: IT)
  Receive Date: 20200113
  Receipt Date: 20200113
  Transmission Date: 20200409
  Serious: Yes (Other)
  Sender: FDA-Public Use
  Company Number: IT-009507513-1910ITA012325

PATIENT
  Age: 79 Year
  Sex: Male
  Weight: 74 kg

DRUGS (1)
  1. PEMBROLIZUMAB. [Suspect]
     Active Substance: PEMBROLIZUMAB
     Indication: LUNG NEOPLASM
     Dosage: 200 MILLIGRAM, CYCLICAL
     Route: 041
     Dates: start: 20190613, end: 20190923

REACTIONS (1)
  - Rectal haemorrhage [Not Recovered/Not Resolved]
